FAERS Safety Report 5723590-5 (Version None)
Quarter: 2008Q2

REPORT INFORMATION
  Report Type: 
  Country: None (occurrence: None)
  Receive Date: 20080425
  Receipt Date: 20080415
  Transmission Date: 20081010
  Serious: Yes (Other)
  Sender: FDA-Public Use
  Company Number: 19127

PATIENT
  Age: 50 Year
  Sex: Female
  Weight: 67 kg

DRUGS (2)
  1. PACLITAXEL [Suspect]
     Indication: BREAST CANCER
     Dosage: 130 MG WEEKLY IV
     Route: 042
     Dates: start: 20071206
  2. HERCEPTIN [Concomitant]

REACTIONS (4)
  - BURNING SENSATION [None]
  - DERMATITIS BULLOUS [None]
  - JOINT SWELLING [None]
  - PLANTAR ERYTHEMA [None]
